FAERS Safety Report 16539564 (Version 1)
Quarter: 2019Q3

REPORT INFORMATION
  Report Type: Report from Study
  Country: TW (occurrence: TW)
  Receive Date: 20190708
  Receipt Date: 20190708
  Transmission Date: 20191004
  Serious: Yes (Death)
  Sender: FDA-Public Use
  Company Number: TW-EMD SERONO-9102532

PATIENT
  Sex: Male

DRUGS (1)
  1. AVELUMAB [Suspect]
     Active Substance: AVELUMAB
     Indication: NEUROENDOCRINE CARCINOMA OF THE SKIN

REACTIONS (1)
  - Death [Fatal]
